FAERS Safety Report 15110556 (Version 2)
Quarter: 2018Q4

REPORT INFORMATION
  Report Type: Spontaneous
  Country: CN (occurrence: CN)
  Receive Date: 20180705
  Receipt Date: 20181228
  Transmission Date: 20190204
  Serious: Yes (Hospitalization)
  Sender: FDA-Public Use
  Company Number: CN-PFIZER INC-2018266563

PATIENT
  Age: 5 Week
  Sex: Male
  Weight: 4.41 kg

DRUGS (4)
  1. SULPERAZON [Suspect]
     Active Substance: CEFOPERAZONE SODIUM\SULBACTAM SODIUM
     Indication: INFECTION
     Dosage: 0.18 G, 1X/DAY
     Route: 041
  2. SOLU-MEDROL [Suspect]
     Active Substance: METHYLPREDNISOLONE SODIUM SUCCINATE
     Indication: INFECTION
     Dosage: 4.4 NG, 1X/DAY
  3. SODIUM CHLORIDE. [Concomitant]
     Active Substance: SODIUM CHLORIDE
     Indication: VEHICLE SOLUTION USE
     Dosage: 10 ML, 1X/DAY
     Route: 041
  4. AMBROXOL [Suspect]
     Active Substance: AMBROXOL
     Indication: INFECTION
     Dosage: 8.8 MG, 1X/DAY

REACTIONS (2)
  - Drug hypersensitivity [Recovered/Resolved]
  - Papule [Recovered/Resolved]

NARRATIVE: CASE EVENT DATE: 20180430
